FAERS Safety Report 6608935-6 (Version None)
Quarter: 2010Q1

REPORT INFORMATION
  Report Type: 
  Country: None (occurrence: None)
  Receive Date: 20100301
  Receipt Date: 20100220
  Transmission Date: 20100710
  Serious: No
  Sender: FDA-Public Use
  Company Number: US-B.I. PHARMACEUTICALS,INC./RIDGEFIELD-2010-BP-02172BP

PATIENT
  Age: 43 Year
  Sex: Male

DRUGS (1)
  1. SPIRIVA [Suspect]
     Dosage: 36 MCG
     Route: 055
     Dates: start: 20070101

REACTIONS (4)
  - CHEST DISCOMFORT [None]
  - COUGH [None]
  - DRUG INEFFECTIVE [None]
  - INAPPROPRIATE SCHEDULE OF DRUG ADMINISTRATION [None]
